FAERS Safety Report 16298170 (Version 1)
Quarter: 2019Q2

REPORT INFORMATION
  Report Type: Spontaneous
  Country: GB (occurrence: GB)
  Receive Date: 20190510
  Receipt Date: 20190510
  Transmission Date: 20190711
  Serious: Yes (Death)
  Sender: FDA-Public Use
  Company Number: GB-TEVA-2019-GB-1047144

PATIENT
  Age: 43 Year
  Sex: Male
  Weight: 106 kg

DRUGS (5)
  1. QUETIAPINE. [Suspect]
     Active Substance: QUETIAPINE
     Indication: SCHIZOPHRENIFORM DISORDER
     Route: 048
     Dates: start: 20090201
  2. METHADONE [Suspect]
     Active Substance: METHADONE HYDROCHLORIDE
     Indication: DRUG DEPENDENCE
     Route: 048
     Dates: start: 20090101
  3. AMITRIPTYLINE [Concomitant]
     Active Substance: AMITRIPTYLINE
  4. GABAPENTIN. [Suspect]
     Active Substance: GABAPENTIN
     Indication: NEURALGIA
     Route: 048
     Dates: start: 20120101
  5. ETIZOLAM [Concomitant]
     Active Substance: ETIZOLAM

REACTIONS (2)
  - Sudden cardiac death [Fatal]
  - Left ventricular enlargement [Fatal]

NARRATIVE: CASE EVENT DATE: 20180327
